FAERS Safety Report 7014603-1 (Version None)
Quarter: 2010Q3

REPORT INFORMATION
  Report Type: 
  Country: None (occurrence: None)
  Receive Date: 20100927
  Receipt Date: 20100922
  Transmission Date: 20110219
  Serious: Yes (Hospitalization, Other)
  Sender: FDA-Public Use
  Company Number: BR-ROCHE-697076

PATIENT
  Sex: Female
  Weight: 35 kg

DRUGS (8)
  1. RIVOTRIL [Suspect]
     Indication: PANIC REACTION
     Dosage: TAKEN OVER 1 YEAR.OTHER INDIC:MANIA
     Route: 048
     Dates: start: 20090101
  2. BROMAZEPAM [Suspect]
     Indication: PANIC REACTION
     Dosage: OTHER INDICATION:MANIA
     Route: 048
  3. CAPTOPRIL [Concomitant]
     Indication: HYPERTENSION
  4. FLUXENE [Concomitant]
     Indication: ANTIDEPRESSANT THERAPY
     Route: 048
  5. RISPERIDON [Concomitant]
     Dosage: TAKEN AT NIGHT.
  6. OMEPRAZOLE [Concomitant]
     Dosage: TAKEN IN THE MORNING.
  7. ATENOLOL [Concomitant]
     Indication: TACHYCARDIA
  8. VITAMIN B COMPLEX CAP [Concomitant]
     Indication: ILL-DEFINED DISORDER

REACTIONS (10)
  - ANXIETY [None]
  - BLOOD PRESSURE INCREASED [None]
  - DRUG INEFFECTIVE [None]
  - DYSARTHRIA [None]
  - GAIT DISTURBANCE [None]
  - HEAD DISCOMFORT [None]
  - INSOMNIA [None]
  - SEDATION [None]
  - SKIN CANCER [None]
  - TREMOR [None]
